FAERS Safety Report 15423575 (Version 1)
Quarter: 2018Q3

REPORT INFORMATION
  Report Type: Spontaneous
  Country: US (occurrence: US)
  Receive Date: 20180920
  Receipt Date: 20180920
  Transmission Date: 20181010
  Serious: No
  Sender: FDA-Public Use
  Company Number: None

PATIENT

DRUGS (1)
  1. XYLOCAINE MPF [Suspect]
     Active Substance: LIDOCAINE HYDROCHLORIDE
     Indication: INDUCTION OF ANAESTHESIA
     Route: 058
     Dates: start: 20180918, end: 20180920

REACTIONS (3)
  - Intentional product use issue [None]
  - Drug effect prolonged [None]
  - Inadequate analgesia [None]

NARRATIVE: CASE EVENT DATE: 20180920
